FAERS Safety Report 12453992 (Version 2)
Quarter: 2016Q2

REPORT INFORMATION
  Report Type: Report from Study
  Country: US (occurrence: US)
  Receive Date: 20160610
  Receipt Date: 20160623
  Transmission Date: 20160815
  Serious: No
  Sender: FDA-Public Use
  Company Number: US-AMGEN-USASP2016071861

PATIENT
  Age: 59 Year
  Sex: Female

DRUGS (1)
  1. ENBREL [Suspect]
     Active Substance: ETANERCEPT
     Indication: RHEUMATOID ARTHRITIS
     Dosage: 50 MG, QWK
     Route: 065
     Dates: start: 20160520, end: 201606

REACTIONS (4)
  - Hypersensitivity [Unknown]
  - Paraesthesia [Unknown]
  - Rash pruritic [Unknown]
  - Rash macular [Unknown]

NARRATIVE: CASE EVENT DATE: 201606
